FAERS Safety Report 15448588 (Version 1)
Quarter: 2018Q3

REPORT INFORMATION
  Report Type: Spontaneous
  Country: US (occurrence: US)
  Receive Date: 20180929
  Receipt Date: 20180929
  Transmission Date: 20181010
  Serious: No
  Sender: FDA-Public Use
  Company Number: US-TEVA-2018-US-958024

PATIENT

DRUGS (1)
  1. AMPHETAMINE [Suspect]
     Active Substance: AMPHETAMINE

REACTIONS (5)
  - Feeling jittery [Unknown]
  - Anxiety [Unknown]
  - Fatigue [Unknown]
  - Respiratory rate increased [Unknown]
  - Adjustment disorder with depressed mood [Unknown]
